FAERS Safety Report 9145383 (Version 1)
Quarter: 2013Q1

REPORT INFORMATION
  Report Type: Spontaneous
  Country: US (occurrence: None)
  Receive Date: 20130226
  Receipt Date: 20130226
  Transmission Date: 20140127
  Serious: Yes (Life-Threatening)
  Sender: FDA-Public Use
  Company Number: None

PATIENT
  Age: 46 Year
  Sex: Female
  Weight: 129.28 kg

DRUGS (1)
  1. LEVAQUIN [Suspect]
     Indication: LUNG INFECTION
     Dosage: 500 OR 750 MG  QD  PO
     Route: 048
     Dates: start: 20121201, end: 20121201

REACTIONS (8)
  - Joint swelling [None]
  - Gait disturbance [None]
  - Dysstasia [None]
  - Palpitations [None]
  - Anxiety [None]
  - Weight increased [None]
  - Fear [None]
  - Asthenia [None]
